FAERS Safety Report 19994930 (Version 3)
Quarter: 2022Q3

REPORT INFORMATION
  Report Type: Report from Study
  Country: DE (occurrence: DE)
  Receive Date: 20211026
  Receipt Date: 20220809
  Transmission Date: 20221026
  Serious: Yes (Death, Other)
  Sender: FDA-Public Use
  Company Number: None

PATIENT
  Age: 48 Year
  Sex: Female
  Weight: 76 kg

DRUGS (4)
  1. CAPECITABINE [Suspect]
     Active Substance: CAPECITABINE
     Indication: Breast cancer metastatic
     Dosage: 500 MG (4 IN THE MORNING AND 4 IN THE EVENING)
     Route: 065
     Dates: start: 20191112, end: 20200524
  2. FULVESTRANT [Suspect]
     Active Substance: FULVESTRANT
     Indication: Breast cancer metastatic
     Dosage: 250 MG, DAILY (EVERY FOUR WEEKS)
     Route: 042
     Dates: start: 20190627, end: 20191024
  3. RIBOCICLIB [Suspect]
     Active Substance: RIBOCICLIB
     Indication: Breast cancer metastatic
     Dosage: 600 MG, QD
     Route: 048
     Dates: start: 20190627, end: 20191111
  4. METOCLOPRAMIDE [Concomitant]
     Active Substance: METOCLOPRAMIDE
     Indication: Adverse event
     Dosage: UNK, PRN
     Dates: start: 20200211

REACTIONS (8)
  - Nausea [Unknown]
  - Vomiting [Fatal]
  - Leukopenia [Recovered/Resolved]
  - General physical health deterioration [Fatal]
  - Breast cancer metastatic [Fatal]
  - Pain in extremity [Unknown]
  - Malignant neoplasm progression [Fatal]
  - Hyperhidrosis [Recovered/Resolved]

NARRATIVE: CASE EVENT DATE: 20190725
